FAERS Safety Report 5298089-3 (Version None)
Quarter: 2007Q2

REPORT INFORMATION
  Report Type: 
  Country: None (occurrence: None)
  Receive Date: 20070416
  Receipt Date: 20070404
  Transmission Date: 20071010
  Serious: Yes (Disabling, Other)
  Sender: FDA-Public Use
  Company Number: PHBS2005CY06347

PATIENT
  Age: 67 Year
  Sex: Male

DRUGS (11)
  1. VISKALDIX [Concomitant]
  2. DIOVAN [Concomitant]
  3. CALCIUM [Concomitant]
  4. SENOKOT [Concomitant]
  5. RH EPO [Concomitant]
  6. THALIDOMIDE [Concomitant]
     Dosage: 200 MG/D
     Dates: start: 20001201
  7. GLUCOPHAGE [Concomitant]
  8. GLYBURIDE [Concomitant]
  9. ADALAT [Concomitant]
  10. FERROUS GLUCONATE [Concomitant]
  11. ZOMETA [Suspect]
     Indication: MULTIPLE MYELOMA
     Dosage: 4 MG, QMO
     Route: 042
     Dates: start: 20020323, end: 20050128

REACTIONS (3)
  - GINGIVITIS [None]
  - OSTEONECROSIS [None]
  - TOOTH EXTRACTION [None]
